FAERS Safety Report 18512455 (Version 5)
Quarter: 2021Q3

REPORT INFORMATION
  Report Type: Report from Study
  Country: US (occurrence: US)
  Receive Date: 20201117
  Receipt Date: 20210909
  Transmission Date: 20211014
  Serious: Yes (Other)
  Sender: FDA-Public Use
  Company Number: US-TAKEDA-2020TUS050061

PATIENT
  Age: 64 Year
  Sex: Male
  Weight: 104 kg

DRUGS (18)
  1. AMLODIPINE BESILATE [Concomitant]
     Active Substance: AMLODIPINE BESYLATE
     Route: 065
  2. LIDOCAINE. [Concomitant]
     Active Substance: LIDOCAINE
     Route: 065
  3. SILDENAFIL CITRATE. [Concomitant]
     Active Substance: SILDENAFIL CITRATE
     Route: 065
  4. DIPHENHYDRAMIN [Concomitant]
     Active Substance: DIPHENHYDRAMINE
     Route: 065
  5. NORMAL SALINE [Concomitant]
     Active Substance: SODIUM CHLORIDE
     Route: 065
  6. SOLU?CORTEF [Concomitant]
     Active Substance: HYDROCORTISONE SODIUM SUCCINATE
     Route: 065
  7. FINASTERIDE. [Concomitant]
     Active Substance: FINASTERIDE
     Route: 065
  8. KRILL OIL [Concomitant]
     Active Substance: DIETARY SUPPLEMENT\KRILL OIL
     Route: 065
  9. VITAMIN D2 [Concomitant]
     Active Substance: ERGOCALCIFEROL
     Route: 065
  10. HUMAN NORMAL IMMUNOGLOBULIN; LIQUID [Suspect]
     Active Substance: HUMAN IMMUNOGLOBULIN G
     Indication: CHRONIC LYMPHOCYTIC LEUKAEMIA
     Dosage: 45 GRAM, Q4WEEKS
     Route: 042
     Dates: start: 20201027
  11. ACETAMINOPHEN. [Concomitant]
     Active Substance: ACETAMINOPHEN
     Route: 065
  12. EPINEPHRINE. [Concomitant]
     Active Substance: EPINEPHRINE
     Route: 065
  13. FENOFIBRATE. [Concomitant]
     Active Substance: FENOFIBRATE
     Route: 065
  14. LOXO 101 [Concomitant]
     Route: 065
  15. FLOMAX [MORNIFLUMATE] [Concomitant]
     Active Substance: MORNIFLUMATE
     Route: 065
  16. OSTEO BI?FLEX [CHONDROITIN SULFATE;GLUCOSAMINE HYDROCHLORIDE] [Concomitant]
     Route: 065
  17. SODIUM CHLORIDE. [Concomitant]
     Active Substance: SODIUM CHLORIDE
     Route: 065
  18. FAMOTIDINE. [Concomitant]
     Active Substance: FAMOTIDINE
     Route: 065

REACTIONS (9)
  - Pruritus [Unknown]
  - Hepatic enzyme increased [Unknown]
  - Colitis [Recovering/Resolving]
  - Off label use [Unknown]
  - COVID-19 [Unknown]
  - Leukaemia recurrent [Recovering/Resolving]
  - Rash [Unknown]
  - Pneumonia [Recovering/Resolving]
  - Headache [Unknown]

NARRATIVE: CASE EVENT DATE: 20210723
